FAERS Safety Report 23276876 (Version 1)
Quarter: 2023Q4

REPORT INFORMATION
  Report Type: Spontaneous
  Country: US (occurrence: US)
  Receive Date: 20231208
  Receipt Date: 20231208
  Transmission Date: 20240109
  Serious: No
  Sender: FDA-Public Use
  Company Number: US-AMERICAN REGENT INC-2023000850

PATIENT
  Age: 78 Year
  Sex: Male
  Weight: 99.9 kg

DRUGS (1)
  1. VENOFER [Suspect]
     Active Substance: IRON SUCROSE
     Indication: Product used for unknown indication
     Dosage: 200 MILLIGRAM, UNDILUTED VIA IV PUSH OVER 2-5 MINUTES ADMINISTERED DAILY X 3 DAYS
     Dates: start: 20230404, end: 20230404

REACTIONS (2)
  - Injection site extravasation [Unknown]
  - Inappropriate schedule of product administration [Unknown]

NARRATIVE: CASE EVENT DATE: 20230404
